FAERS Safety Report 9228043 (Version 1)
Quarter: 2013Q2

REPORT INFORMATION
  Report Type: Spontaneous
  Country: US (occurrence: US)
  Receive Date: 20130412
  Receipt Date: 20130412
  Transmission Date: 20140414
  Serious: No
  Sender: FDA-Public Use
  Company Number: US-GLAXOSMITHKLINE-A1009351A

PATIENT
  Age: 28 Year
  Sex: Female

DRUGS (1)
  1. JALYN [Suspect]
     Indication: EXPOSURE VIA BODY FLUID
     Route: 067

REACTIONS (3)
  - Malaise [Unknown]
  - Exposure during pregnancy [Unknown]
  - Exposure via body fluid [Unknown]
